FAERS Safety Report 15830770 (Version 1)
Quarter: 2018Q4

REPORT INFORMATION
  Report Type: Spontaneous
  Country: US (occurrence: US)
  Receive Date: 20181218
  Receipt Date: 20181218
  Transmission Date: 20190205
  Serious: No
  Sender: FDA-Public Use
  Company Number: None

PATIENT
  Age: 56 Year
  Sex: Female

DRUGS (2)
  1. FORTEO [Suspect]
     Active Substance: TERIPARATIDE
     Route: 058
     Dates: start: 201811
  2. ADVIL [Concomitant]
     Active Substance: IBUPROFEN

REACTIONS (2)
  - Hypotension [None]
  - Dizziness [None]

NARRATIVE: CASE EVENT DATE: 20181201
